FAERS Safety Report 17508844 (Version 1)
Quarter: 2020Q1

REPORT INFORMATION
  Report Type: Spontaneous
  Country: US (occurrence: US)
  Receive Date: 20200305
  Receipt Date: 20200305
  Transmission Date: 20200409
  Serious: No
  Sender: FDA-Public Use
  Company Number: None

PATIENT
  Age: 4 Year
  Sex: Male
  Weight: 20.25 kg

DRUGS (2)
  1. MONTELUKAST 4MG [Suspect]
     Active Substance: MONTELUKAST SODIUM
     Indication: ASTHMA
     Dosage: ?          QUANTITY:1 TABLET(S);?
     Route: 048
     Dates: start: 20200108, end: 20200301
  2. MONTELUKAST 4MG [Suspect]
     Active Substance: MONTELUKAST SODIUM
     Indication: HYPERSENSITIVITY
     Dosage: ?          QUANTITY:1 TABLET(S);?
     Route: 048
     Dates: start: 20200108, end: 20200301

REACTIONS (7)
  - Nightmare [None]
  - Enuresis [None]
  - Disturbance in attention [None]
  - Agitation [None]
  - Anger [None]
  - Hypersensitivity [None]
  - Aggression [None]

NARRATIVE: CASE EVENT DATE: 20200302
